FAERS Safety Report 12111722 (Version 2)
Quarter: 2017Q3

REPORT INFORMATION
  Report Type: Spontaneous
  Country: FR (occurrence: FR)
  Receive Date: 20160224
  Receipt Date: 20170712
  Transmission Date: 20171127
  Serious: Yes (Other)
  Sender: FDA-Public Use
  Company Number: FR-ABBVIE-16P-056-1566052-00

PATIENT
  Age: 10 Year
  Sex: Female
  Weight: 23.6 kg

DRUGS (2)
  1. LEUPRORELIN ACETATE [Suspect]
     Active Substance: LEUPROLIDE ACETATE
     Indication: PRECOCIOUS PUBERTY
     Dosage: 11.25 MG, UNK
     Route: 030
     Dates: start: 20151114, end: 20151114
  2. LIDOCAINE, PRILOCAINE [Concomitant]
     Active Substance: LIDOCAINE\PRILOCAINE
     Indication: PRODUCT USED FOR UNKNOWN INDICATION
     Dosage: UNK
     Dates: start: 20151114, end: 20151114

REACTIONS (1)
  - Injection site granuloma [Recovered/Resolved]

NARRATIVE: CASE EVENT DATE: 20151128
